FAERS Safety Report 15826309 (Version 3)
Quarter: 2019Q2

REPORT INFORMATION
  Report Type: Spontaneous
  Country: BR (occurrence: BR)
  Receive Date: 20190115
  Receipt Date: 20190604
  Transmission Date: 20190711
  Serious: Yes (Other)
  Sender: FDA-Public Use
  Company Number: BR-ABBVIE-19P-020-2626045-00

PATIENT
  Sex: Male
  Weight: 88 kg

DRUGS (20)
  1. LORAZEPAM. [Concomitant]
     Active Substance: LORAZEPAM
     Indication: SLEEP DISORDER
     Dosage: MORNING 10AM/NIGHT; ONGOING; DAILY DOSE: 1 TABLET (HALF TABLET TWICE DAILY)
     Route: 048
     Dates: start: 201811
  2. CHLORPROMAZINE. [Concomitant]
     Active Substance: CHLORPROMAZINE
     Indication: AGITATION
     Dosage: SUSPENDED ON UNSPECIFIED DATE
     Route: 065
  3. DEPAKENE [Suspect]
     Active Substance: VALPROIC ACID
     Dosage: PHYSICIAN HAD PRESCRIBED 3 TABLETS; DAILY DOSE: 3 TABLETS
     Route: 048
  4. QUETIAPINE. [Concomitant]
     Active Substance: QUETIAPINE
     Indication: BIPOLAR DISORDER
     Route: 065
  5. AMPLICTIL [Concomitant]
     Active Substance: CHLORPROMAZINE HYDROCHLORIDE
     Indication: BIPOLAR DISORDER
     Dosage: ONGOING; AT 8AM AND AFTERNOON; DAILY DOSE: 50 MG,
     Route: 048
     Dates: start: 201811
  6. DEPAKENE [Suspect]
     Active Substance: VALPROIC ACID
     Dosage: MENTAL CONFUSION PERSISTED. SO HIS PHYSICIAN INCREASED THE DOSE OF DEPAKENE,
     Route: 048
  7. DEPAKENE [Suspect]
     Active Substance: VALPROIC ACID
     Indication: AFFECTIVE DISORDER
     Dosage: DOSE WHEN TREATMENT STARTED WAS NOT SPECIFIED
     Route: 048
     Dates: start: 2013
  8. DEPAKENE [Suspect]
     Active Substance: VALPROIC ACID
     Dosage: AFTER HEPATITIS C TREATMENT, DECIDED TO DECREASE THE DOSE OF DEPAKENE (DOSE NOT SPECIFIED)
     Route: 048
  9. AMPLICTIL [Concomitant]
     Active Substance: CHLORPROMAZINE HYDROCHLORIDE
  10. DEPAKENE [Suspect]
     Active Substance: VALPROIC ACID
     Dosage: REPORTER DECIDED TO INCREASE DE DOSE FREQUENCY(INCREASE THE TIME BETWEEN MEDICATIONS)
     Route: 048
  11. IMIPRAMINE [Concomitant]
     Active Substance: IMIPRAMINE
     Indication: PRODUCT USED FOR UNKNOWN INDICATION
     Route: 065
  12. AMPLICTIL [Concomitant]
     Active Substance: CHLORPROMAZINE HYDROCHLORIDE
     Dosage: WHEN PATIENT EXPERIENCED CRISIS, INCREASED DOSE TO TWICE A DAY WITHIN 5 DAYS
  13. RISPERIDONE. [Concomitant]
     Active Substance: RISPERIDONE
     Indication: PRODUCT USED FOR UNKNOWN INDICATION
     Dosage: SUSPENDED ON UNSPECIFIED DATE
     Route: 065
  14. DEPAKENE [Suspect]
     Active Substance: VALPROIC ACID
     Dosage: REPORTER DECREASED THE DOSE TO 1 TABLET AT NIGHT; DAILY DOSE: 1 TABLET
     Route: 048
  15. DEPAKENE [Suspect]
     Active Substance: VALPROIC ACID
     Dosage: AGITATION DID NOT RESOLVE, SO PHYSICIAN INCREASED THE DOSE TO 2 TABLETS DAILY.
     Route: 048
  16. DEPAKENE [Suspect]
     Active Substance: VALPROIC ACID
     Dosage: INCREASED THE DOSE OF AND PATIENT?S CONDITION WORSENED FOR 3 DAYS AND IT WAS INTERRUPTED
     Route: 048
  17. RIVOTRIL [Suspect]
     Active Substance: CLONAZEPAM
     Indication: PRODUCT USED FOR UNKNOWN INDICATION
     Route: 065
  18. AMPLICTIL [Concomitant]
     Active Substance: CHLORPROMAZINE HYDROCHLORIDE
     Dosage: PATIENT HAD USED THIS MEDICATION IN THE PAST (NO FURTHER DETAILS PROVIDED)
  19. LOSARTAN. [Concomitant]
     Active Substance: LOSARTAN
     Indication: BLOOD PRESSURE ABNORMAL
     Route: 048
  20. HYDROCHLOROTHIAZIDE. [Concomitant]
     Active Substance: HYDROCHLOROTHIAZIDE
     Indication: BLOOD PRESSURE ABNORMAL
     Dosage: ADMINISTERED IN THE MORNING
     Route: 048

REACTIONS (20)
  - Ischaemic stroke [Recovering/Resolving]
  - Mania [Recovered/Resolved]
  - Muscle rigidity [Unknown]
  - Hepatic cirrhosis [Unknown]
  - Ammonia increased [Unknown]
  - Hepatic function abnormal [Not Recovered/Not Resolved]
  - Cognitive disorder [Unknown]
  - Intentional product use issue [Unknown]
  - Hepatitis C [Unknown]
  - Confusional state [Recovering/Resolving]
  - Therapeutic response changed [Recovering/Resolving]
  - Limb discomfort [Unknown]
  - Brain scan abnormal [Unknown]
  - Mental disorder [Recovering/Resolving]
  - Dementia [Unknown]
  - Off label use [Unknown]
  - Unevaluable event [Unknown]
  - Hepatic neoplasm [Unknown]
  - Agitation [Unknown]
  - Product use in unapproved indication [Unknown]

NARRATIVE: CASE EVENT DATE: 2018
